FAERS Safety Report 4865044-4 (Version None)
Quarter: 2005Q4

REPORT INFORMATION
  Report Type: 
  Country: None (occurrence: None)
  Receive Date: 20051219
  Receipt Date: 20051025
  Transmission Date: 20060501
  Serious: Yes (Hospitalization, Other)
  Sender: FDA-Public Use
  Company Number: 2005147563

PATIENT
  Age: 77 Year
  Sex: Male

DRUGS (18)
  1. PHENYTOIN SODIUM [Suspect]
     Indication: EPILEPSY
     Dosage: 300 MG (100 MG, IN 1 D), ORAL
     Route: 048
  2. SINEMET [Concomitant]
     Indication: PARKINSON'S DISEASE
  3. FENTANYL [Concomitant]
  4. XYLOCDAINE (LIDOCAINE HYDROCHLORIDE) [Concomitant]
  5. THIOPENTAL SODIUM [Concomitant]
  6. ANECTINE [Concomitant]
  7. MIDAZOLAM HCL [Concomitant]
  8. CLOBAZAM (CLOBAZAM) [Concomitant]
  9. GATIFLOXACIN [Concomitant]
  10. CLINDAMYCIN [Concomitant]
  11. CEFUROXIME SODIUM (CEFUROXIME SODIUM) [Concomitant]
  12. CEFTIN [Concomitant]
  13. DALACIN [Concomitant]
  14. K-DUR 10 [Concomitant]
  15. ACETYLSALICYLIC ACID (ACETLYSALICYLIC ACID) [Concomitant]
  16. LOPRESSOR [Concomitant]
  17. PANTOPRAZOLE SODIUM [Concomitant]
  18. CALCIUM  WITH VITAMIN D (CALCIUM PHOSPHATE, CALCIUM SODIUM LACTATE, ER [Concomitant]

REACTIONS (21)
  - ACCIDENT [None]
  - ANAEMIA [None]
  - ANTICONVULSANT DRUG LEVEL DECREASED [None]
  - ARTHRALGIA [None]
  - BENIGN PROSTATIC HYPERPLASIA [None]
  - COMPLEX PARTIAL SEIZURES [None]
  - CONDITION AGGRAVATED [None]
  - CONFUSIONAL STATE [None]
  - CONVULSION [None]
  - DEPRESSION [None]
  - DRUG INTERACTION [None]
  - DYSPNOEA [None]
  - FALL [None]
  - FEMORAL NECK FRACTURE [None]
  - HEAD INJURY [None]
  - JOINT SWELLING [None]
  - OSTEOPOROSIS [None]
  - PARKINSON'S DISEASE [None]
  - PNEUMONIA ASPIRATION [None]
  - SKIN LACERATION [None]
  - UPPER LIMB FRACTURE [None]
